FAERS Safety Report 15218834 (Version 1)
Quarter: 2018Q3

REPORT INFORMATION
  Report Type: Spontaneous
  Country: PL (occurrence: PL)
  Receive Date: 20180731
  Receipt Date: 20180731
  Transmission Date: 20181010
  Serious: Yes (Death)
  Sender: FDA-Public Use
  Company Number: PL-BIOGEN-2018BI00612900

PATIENT
  Age: 38 Year
  Sex: Male

DRUGS (6)
  1. TRITTICO [Concomitant]
     Active Substance: TRAZODONE HYDROCHLORIDE
     Indication: DEPRESSION
     Dosage: DRUG TAKEN PERMANENTLY
     Route: 048
  2. DITROPAN [Concomitant]
     Active Substance: OXYBUTYNIN CHLORIDE
     Indication: MULTIPLE SCLEROSIS
     Dosage: DRUG TAKEN PERMANENTLY
     Route: 048
  3. TYSABRI [Suspect]
     Active Substance: NATALIZUMAB
     Indication: MULTIPLE SCLEROSIS
     Route: 042
     Dates: start: 20141217, end: 20170619
  4. NEXPRAM [Concomitant]
     Indication: DEPRESSION
     Dosage: DRUG TAKEN PERMANENTLY
     Route: 048
  5. BACLOFEN. [Concomitant]
     Active Substance: BACLOFEN
     Indication: MULTIPLE SCLEROSIS
     Dosage: DRUG TAKEN PERMANENTLY
     Route: 048
  6. DERMOVATE [Concomitant]
     Active Substance: CLOBETASOL
     Indication: PSORIASIS
     Dosage: DRUG TAKEN PERMANENTLY
     Route: 061

REACTIONS (1)
  - Cerebral aspergillosis [Fatal]

NARRATIVE: CASE EVENT DATE: 20170806
